FAERS Safety Report 17622669 (Version 1)
Quarter: 2020Q2

REPORT INFORMATION
  Report Type: Spontaneous
  Country: CA (occurrence: CA)
  Receive Date: 20200403
  Receipt Date: 20200403
  Transmission Date: 20200713
  Serious: Yes (Other)
  Sender: FDA-Public Use
  Company Number: CA-SA-2020SA079660

PATIENT
  Sex: Female

DRUGS (8)
  1. ORENCIA [Concomitant]
     Active Substance: ABATACEPT
  2. HUMIRA [Concomitant]
     Active Substance: ADALIMUMAB
  3. LEFLUNOMIDE. [Suspect]
     Active Substance: LEFLUNOMIDE
     Dosage: 20 MG, QD
     Route: 065
  4. CODEINE [Suspect]
     Active Substance: CODEINE
  5. ACTEMRA [Suspect]
     Active Substance: TOCILIZUMAB
     Route: 065
  6. METHOTREXATE. [Concomitant]
     Active Substance: METHOTREXATE
  7. HYDROXYCHLOROQUINE [Suspect]
     Active Substance: HYDROXYCHLOROQUINE
     Dosage: 400 MG, QD
     Route: 065
  8. ENBREL [Concomitant]
     Active Substance: ETANERCEPT

REACTIONS (5)
  - Drug hypersensitivity [Unknown]
  - Diarrhoea [Unknown]
  - Drug intolerance [Unknown]
  - Leukopenia [Unknown]
  - Drug ineffective [Unknown]
